FAERS Safety Report 19031208 (Version 1)
Quarter: 2021Q1

REPORT INFORMATION
  Report Type: Spontaneous
  Country: US (occurrence: US)
  Receive Date: 20210319
  Receipt Date: 20210319
  Transmission Date: 20210420
  Serious: No
  Sender: FDA-Public Use
  Company Number: US-GLAXOSMITHKLINE-US2021061357

PATIENT
  Sex: Male

DRUGS (1)
  1. FLOVENT HFA [Suspect]
     Active Substance: FLUTICASONE PROPIONATE
     Indication: EOSINOPHILIC OESOPHAGITIS
     Dosage: 200 MCG/MG, BID

REACTIONS (4)
  - Product use in unapproved indication [Unknown]
  - Incorrect route of product administration [Unknown]
  - Oral candidiasis [Unknown]
  - Drug effective for unapproved indication [Unknown]
